FAERS Safety Report 16819142 (Version 1)
Quarter: 2019Q3

REPORT INFORMATION
  Report Type: Spontaneous
  Country: US (occurrence: US)
  Receive Date: 20190917
  Receipt Date: 20190917
  Transmission Date: 20191005
  Serious: No
  Sender: FDA-Public Use
  Company Number: US-AKRON, INC.-2074544

PATIENT
  Age: 68 Year
  Sex: Male

DRUGS (1)
  1. TROPICAMIDE OPTH SOL 1% [Suspect]
     Active Substance: TROPICAMIDE
     Route: 047

REACTIONS (4)
  - Vision blurred [None]
  - Keratitis [None]
  - Dry eye [None]
  - Diplopia [None]
